FAERS Safety Report 13489067 (Version 1)
Quarter: 2017Q2

REPORT INFORMATION
  Report Type: Spontaneous
  Country: US (occurrence: US)
  Receive Date: 20170426
  Receipt Date: 20170426
  Transmission Date: 20170830
  Serious: No
  Sender: FDA-Public Use
  Company Number: US-MAYNE PHARMA-2015MYN000285

PATIENT
  Age: 74 Year
  Sex: Female
  Weight: 77.63 kg

DRUGS (3)
  1. AZILECT [Suspect]
     Active Substance: RASAGILINE MESYLATE
     Indication: PARKINSON^S DISEASE
     Route: 065
     Dates: start: 20150811, end: 20150908
  2. CARBIDOPA/LEVODOPA [Suspect]
     Active Substance: CARBIDOPA\LEVODOPA
     Route: 065
  3. ALEVE [Concomitant]
     Active Substance: NAPROXEN SODIUM
     Indication: PAIN

REACTIONS (6)
  - Urinary tract infection [Unknown]
  - Impaired driving ability [Unknown]
  - Fall [Unknown]
  - Feeling abnormal [Recovered/Resolved]
  - Pain [Unknown]
  - Renal pain [Unknown]

NARRATIVE: CASE EVENT DATE: 201508
